FAERS Safety Report 24265916 (Version 1)
Quarter: 2024Q3

REPORT INFORMATION
  Report Type: Spontaneous
  Country: US (occurrence: US)
  Receive Date: 20240830
  Receipt Date: 20240830
  Transmission Date: 20241017
  Serious: No
  Sender: ACCORD
  Company Number: US-Accord-373588

PATIENT
  Age: 73 Year
  Sex: Male
  Weight: 79.38 kg

DRUGS (2)
  1. DALFAMPRIDINE [Suspect]
     Active Substance: DALFAMPRIDINE
     Indication: Cerebellar ataxia
     Dosage: 10 MG BY MOUTH, EXTENDED-RELEASE
  2. VITAMIN D3 [Concomitant]
     Active Substance: CHOLECALCIFEROL

REACTIONS (4)
  - Rash [Not Recovered/Not Resolved]
  - Pruritus [Unknown]
  - Thermal burn [Unknown]
  - Off label use [Unknown]

NARRATIVE: CASE EVENT DATE: 20230724
